FAERS Safety Report 20857478 (Version 2)
Quarter: 2022Q3

REPORT INFORMATION
  Report Type: Spontaneous
  Country: US (occurrence: US)
  Receive Date: 20220520
  Receipt Date: 20220915
  Transmission Date: 20221027
  Serious: No
  Sender: FDA-Public Use
  Company Number: US-SA-SAC20220518000583

PATIENT
  Age: 9 Year
  Sex: Female

DRUGS (1)
  1. DUPIXENT [Suspect]
     Active Substance: DUPILUMAB
     Dosage: 300 MG;FREQUENCY :OTHER
     Route: 058
     Dates: start: 202202

REACTIONS (4)
  - Skin discolouration [Unknown]
  - Skin exfoliation [Recovering/Resolving]
  - Rash macular [Unknown]
  - Device use issue [Unknown]

NARRATIVE: CASE EVENT DATE: 20220201
